FAERS Safety Report 8313264-9 (Version None)
Quarter: 2012Q2

REPORT INFORMATION
  Report Type: 
  Country: None (occurrence: None)
  Receive Date: 20120426
  Receipt Date: 20120417
  Transmission Date: 20120825
  Serious: Yes (Hospitalization)
  Sender: FDA-Public Use
  Company Number: US-NOVOPROD-343101

PATIENT
  Age: 56 Year
  Sex: Male
  Weight: 120 kg

DRUGS (2)
  1. PLAVIX [Concomitant]
  2. LIRAGLUTIDE FLEXPEN [Suspect]
     Indication: TYPE 2 DIABETES MELLITUS
     Dosage: 1.8 MG, QD
     Route: 058
     Dates: start: 20101119

REACTIONS (2)
  - CORONARY REVASCULARISATION [None]
  - ANGINA UNSTABLE [None]
